FAERS Safety Report 23282439 (Version 1)
Quarter: 2023Q4

REPORT INFORMATION
  Report Type: Spontaneous
  Country: US (occurrence: US)
  Receive Date: 20231211
  Receipt Date: 20231211
  Transmission Date: 20240110
  Serious: No
  Sender: FDA-Public Use
  Company Number: US-GALDERMA-US2023017048

PATIENT

DRUGS (10)
  1. PROACTIV MD ADAPALENE ACNE TREATMENT [Suspect]
     Active Substance: ADAPALENE
     Indication: Acne
     Dosage: 1 DOSAGE FORM, TWICE
     Route: 061
     Dates: start: 20231103, end: 20231104
  2. PROACTIV CLEAR SKIN SPF 30 [Concomitant]
     Active Substance: AVOBENZONE\OCTISALATE\OCTOCRYLENE
     Indication: Acne
     Dosage: 1 DOSAGE FORM, ONCE
     Route: 061
     Dates: start: 20231103, end: 20231104
  3. Proactiv MD Ultra Gentle Cleanser [Concomitant]
     Indication: Acne
     Dosage: 1 DOSAGE FORM, ONCE
     Dates: start: 20231103, end: 20231104
  4. Proactiv MD Ultra Hydrating Moisturizer [Concomitant]
     Indication: Acne
     Dosage: 1 DOSAGE FORM, ONCE
     Route: 061
     Dates: start: 20231103, end: 20231104
  5. COSMETICS [Concomitant]
     Active Substance: COSMETICS
     Indication: Acne
     Dosage: 1 DOSAGE FORM, ONCE
     Route: 061
     Dates: start: 20231103, end: 20231104
  6. COSMETICS [Concomitant]
     Active Substance: COSMETICS
     Indication: Acne
     Dosage: 1 DOSAGE FORM, ONCE
     Route: 061
     Dates: start: 20231103, end: 20231104
  7. PROACTIV SKIN PURIFYING MASK [Concomitant]
     Active Substance: SULFUR
     Indication: Acne
     Dosage: 1 DOSAGE FORM, ONCE
     Route: 061
     Dates: start: 20231103, end: 20231104
  8. PROACTIV BLACKHEAD DISSOLVING [Concomitant]
     Active Substance: SALICYLIC ACID
     Indication: Acne
     Dosage: 1 DOSAGE FORM, ONCE
     Route: 061
     Dates: start: 20231103, end: 20231104
  9. PROACTIV PLUS RETEXTURIZING TONER [Concomitant]
     Active Substance: SALICYLIC ACID
     Indication: Acne
     Dosage: 1 DOSAGE FORM, ONCE
     Route: 061
     Dates: start: 20231103, end: 20231104
  10. ZYRTEC [Concomitant]
     Active Substance: CETIRIZINE HYDROCHLORIDE
     Indication: Product used for unknown indication
     Route: 065

REACTIONS (5)
  - Hypersensitivity [Not Recovered/Not Resolved]
  - Dermatitis [Not Recovered/Not Resolved]
  - Periorbital inflammation [Not Recovered/Not Resolved]
  - Pruritus [Not Recovered/Not Resolved]
  - Acne [Not Recovered/Not Resolved]

NARRATIVE: CASE EVENT DATE: 20231104
